FAERS Safety Report 11233630 (Version 1)
Quarter: 2015Q3

REPORT INFORMATION
  Report Type: Spontaneous
  Country: US (occurrence: US)
  Receive Date: 20150702
  Receipt Date: 20150702
  Transmission Date: 20151125
  Serious: Yes (Hospitalization)
  Sender: FDA-Public Use
  Company Number: US-PFIZER INC-2015125744

PATIENT
  Age: 88 Year
  Sex: Female

DRUGS (3)
  1. LASIX [Concomitant]
     Active Substance: FUROSEMIDE
     Dosage: UNK
  2. ENBREL [Suspect]
     Active Substance: ETANERCEPT
     Indication: RHEUMATOID ARTHRITIS
     Dosage: 50 MG, WEEKLY
     Dates: start: 20150310, end: 20150609
  3. GABAPENTIN. [Suspect]
     Active Substance: GABAPENTIN
     Indication: SPINAL PAIN
     Dosage: UNK

REACTIONS (13)
  - Urinary tract infection [Not Recovered/Not Resolved]
  - Somnolence [Not Recovered/Not Resolved]
  - Asthenia [Not Recovered/Not Resolved]
  - Fatigue [Not Recovered/Not Resolved]
  - Pain [Not Recovered/Not Resolved]
  - Spinal pain [Unknown]
  - Burning sensation [Unknown]
  - Diarrhoea [Unknown]
  - Swelling [Not Recovered/Not Resolved]
  - Cardiac failure congestive [Unknown]
  - Mobility decreased [Not Recovered/Not Resolved]
  - Hypophagia [Not Recovered/Not Resolved]
  - Abdominal discomfort [Recovered/Resolved]

NARRATIVE: CASE EVENT DATE: 2015
